FAERS Safety Report 13084721 (Version 2)
Quarter: 2017Q3

REPORT INFORMATION
  Report Type: Spontaneous
  Country: NL (occurrence: NL)
  Receive Date: 20170104
  Receipt Date: 20170724
  Transmission Date: 20171127
  Serious: Yes (Hospitalization)
  Sender: FDA-Public Use
  Company Number: NL-TEVA-725557ACC

PATIENT
  Age: 68 Year
  Sex: Male

DRUGS (5)
  1. DOXYCYCLINE. [Concomitant]
     Active Substance: DOXYCYCLINE
     Dosage: STRENGTH AND DOSAGE NOT KNOWN
     Route: 048
  2. OXALIPLATINE INFUUS [Suspect]
     Active Substance: OXALIPLATIN
     Indication: OESOPHAGEAL CARCINOMA
     Route: 042
     Dates: start: 20161216
  3. DEXAMETHASON [Concomitant]
     Active Substance: DEXAMETHASONE
     Dosage: STRENGTH AND DOSAGE NOT KNOWN
     Route: 042
     Dates: start: 20161216
  4. GRANISETRON INFOPL CONC 1MG/ML [Concomitant]
     Dosage: STRENGTH AND DOSAGE NOT KNOWN
     Route: 042
     Dates: start: 20161216
  5. OMEPRAZOL [Concomitant]
     Active Substance: OMEPRAZOLE
     Dosage: STRENGTH AND DOSAGE NOT KNOWN
     Route: 048

REACTIONS (7)
  - Pallor [Recovered/Resolved]
  - Eye movement disorder [Recovered/Resolved]
  - Vomiting [Recovered/Resolved]
  - Cold sweat [Recovered/Resolved]
  - Malaise [Recovered/Resolved]
  - Diarrhoea [Recovered/Resolved]
  - Loss of consciousness [Recovered/Resolved]

NARRATIVE: CASE EVENT DATE: 20161216
